FAERS Safety Report 23475992 (Version 1)
Quarter: 2024Q1

REPORT INFORMATION
  Report Type: Report from Study
  Country: US (occurrence: US)
  Receive Date: 20240204
  Receipt Date: 20240204
  Transmission Date: 20240410
  Serious: Yes (Other)
  Sender: FDA-Public Use
  Company Number: US-EXELIXIS-CABO-23071075

PATIENT
  Age: 60 Year
  Sex: Male

DRUGS (12)
  1. CABOMETYX [Suspect]
     Active Substance: CABOZANTINIB S-MALATE
     Indication: Renal cancer
     Dosage: 40 MG, QD
     Route: 048
     Dates: start: 20230712, end: 20231229
  2. ACETAMINOPHEN [Concomitant]
     Active Substance: ACETAMINOPHEN
  3. ATORVASTATIN [Concomitant]
     Active Substance: ATORVASTATIN
  4. CARVEDILOL [Concomitant]
     Active Substance: CARVEDILOL
  5. FINASTERIDE [Concomitant]
     Active Substance: FINASTERIDE
  6. GARLIC [Concomitant]
     Active Substance: GARLIC
  7. LIDOCAINE\PRILOCAINE [Concomitant]
     Active Substance: LIDOCAINE\PRILOCAINE
  8. LISINOPRIL [Concomitant]
     Active Substance: LISINOPRIL
  9. NIACIN [Concomitant]
     Active Substance: NIACIN
  10. ONDANSETRON [Concomitant]
     Active Substance: ONDANSETRON
  11. PROCHLORPERAZINE MALEATE [Concomitant]
     Active Substance: PROCHLORPERAZINE MALEATE
  12. TAMSULOSIN [Concomitant]
     Active Substance: TAMSULOSIN

REACTIONS (3)
  - Pulmonary embolism [Unknown]
  - Blood pressure increased [Unknown]
  - Diarrhoea [Recovered/Resolved]

NARRATIVE: CASE EVENT DATE: 20231025
